FAERS Safety Report 6641308-9 (Version None)
Quarter: 2010Q1

REPORT INFORMATION
  Report Type: 
  Country: None (occurrence: None)
  Receive Date: 20100318
  Receipt Date: 20100309
  Transmission Date: 20100710
  Serious: Yes (Death, Life-Threatening, Hospitalization, Other)
  Sender: FDA-Public Use
  Company Number: US-BAXTER-2010BH006445

PATIENT
  Age: 49 Year
  Sex: Female
  Weight: 60 kg

DRUGS (13)
  1. CYCLOPHOSPHAMIDE [Suspect]
     Indication: BREAST CANCER STAGE II
     Route: 042
     Dates: start: 20100210, end: 20100210
  2. TAXOTERE [Suspect]
     Indication: BREAST CANCER STAGE II
     Route: 051
     Dates: start: 20100210, end: 20100210
  3. TAXOTERE [Suspect]
     Route: 051
     Dates: start: 20100210, end: 20100210
  4. TAXOTERE [Suspect]
     Route: 051
     Dates: start: 20100210, end: 20100210
  5. DOXORUBICIN HCL [Suspect]
     Indication: BREAST CANCER STAGE II
     Route: 065
     Dates: start: 20100210, end: 20100210
  6. PEGFILGRASTIM [Concomitant]
     Indication: DRUG USE FOR UNKNOWN INDICATION
     Route: 065
  7. APREPITANT [Concomitant]
     Indication: DRUG USE FOR UNKNOWN INDICATION
     Route: 048
     Dates: start: 20100210
  8. DEXAMETHASONE [Concomitant]
     Indication: DRUG USE FOR UNKNOWN INDICATION
     Route: 042
     Dates: start: 20100210
  9. ONDANSETRON [Concomitant]
     Indication: DRUG USE FOR UNKNOWN INDICATION
     Route: 065
  10. LORAZEPAM [Concomitant]
     Indication: DRUG USE FOR UNKNOWN INDICATION
     Route: 065
  11. PROCHLORPERAZINE MALEATE [Concomitant]
     Indication: DRUG USE FOR UNKNOWN INDICATION
     Route: 065
  12. BUSPIRONE HCL [Concomitant]
     Indication: DRUG USE FOR UNKNOWN INDICATION
     Route: 065
  13. FLUOXETINE [Concomitant]
     Indication: DRUG USE FOR UNKNOWN INDICATION
     Route: 065

REACTIONS (6)
  - ABDOMINAL PAIN [None]
  - CAECITIS [None]
  - CLOSTRIDIAL INFECTION [None]
  - NAUSEA [None]
  - SEPTIC SHOCK [None]
  - VOMITING [None]
